FAERS Safety Report 9957067 (Version 1)
Quarter: 2014Q1

REPORT INFORMATION
  Report Type: Report from Study
  Country: US (occurrence: US)
  Receive Date: 20140304
  Receipt Date: 20140304
  Transmission Date: 20141002
  Serious: No
  Sender: FDA-Public Use
  Company Number: US-ABBVIE-13P-163-1096496-00

PATIENT
  Age: 60 Year
  Sex: Male

DRUGS (7)
  1. HUMIRA [Suspect]
     Indication: COLITIS ULCERATIVE
     Dates: start: 20130412
  2. SYNTHROID [Concomitant]
     Indication: THYROID DISORDER
     Dosage: 0.137MG DAILY
  3. TYLENOL [Concomitant]
     Indication: PAIN
  4. TYLENOL [Concomitant]
     Indication: PAIN
  5. QUETIAPINE [Concomitant]
     Indication: INSOMNIA
  6. QUETIAPINE [Concomitant]
     Indication: ANXIETY
  7. STEROIDS [Concomitant]
     Indication: PRODUCT USED FOR UNKNOWN INDICATION

REACTIONS (3)
  - Fatigue [Not Recovered/Not Resolved]
  - Haematochezia [Not Recovered/Not Resolved]
  - Arthralgia [Not Recovered/Not Resolved]
